FAERS Safety Report 18072649 (Version 1)
Quarter: 2020Q3

REPORT INFORMATION
  Report Type: Spontaneous
  Country: US (occurrence: US)
  Receive Date: 20200727
  Receipt Date: 20200727
  Transmission Date: 20201103
  Serious: Yes (Hospitalization)
  Sender: FDA-Public Use
  Company Number: None

PATIENT
  Age: 67 Year
  Sex: Male
  Weight: 118 kg

DRUGS (1)
  1. GLIPIZIDE 5MG [Suspect]
     Active Substance: GLIPIZIDE

REACTIONS (4)
  - Therapy cessation [None]
  - Fall [None]
  - Hypoglycaemia [None]
  - Mental status changes [None]
